FAERS Safety Report 7763595-6 (Version None)
Quarter: 2011Q3

REPORT INFORMATION
  Report Type: 
  Country: None (occurrence: None)
  Receive Date: 20110920
  Receipt Date: 20110512
  Transmission Date: 20111222
  Serious: No
  Sender: FDA-Public Use
  Company Number: US-BAYER-2011-042473

PATIENT
  Age: 31 Year
  Sex: Female
  Weight: 61.678 kg

DRUGS (2)
  1. ULTRAVIST 150 [Suspect]
     Indication: COMPUTERISED TOMOGRAM
     Dosage: 92 ML, UNK
     Route: 042
     Dates: start: 20110512
  2. BARIUM [Concomitant]
     Indication: COMPUTERISED TOMOGRAM
     Dosage: X2
     Route: 048
     Dates: start: 20110512

REACTIONS (2)
  - NAUSEA [None]
  - VOMITING [None]
